FAERS Safety Report 8219233-1 (Version None)
Quarter: 2012Q1

REPORT INFORMATION
  Report Type: 
  Country: None (occurrence: None)
  Receive Date: 20120307
  Receipt Date: 20100316
  Transmission Date: 20120608
  Serious: Yes (Other)
  Sender: FDA-Public Use
  Company Number: PHEH2010US02414

PATIENT
  Age: 72 Year
  Sex: Female

DRUGS (1)
  1. AFINITOR [Suspect]

REACTIONS (2)
  - NEOPLASM MALIGNANT [None]
  - METASTASIS [None]
